FAERS Safety Report 7500586-4 (Version None)
Quarter: 2011Q2

REPORT INFORMATION
  Report Type: 
  Country: None (occurrence: None)
  Receive Date: 20110517
  Receipt Date: 20110503
  Transmission Date: 20111010
  Serious: Yes (Other)
  Sender: FDA-Public Use
  Company Number: 2011PV000021

PATIENT
  Age: 52 Year
  Sex: Female

DRUGS (4)
  1. RETINOIC ACID [Concomitant]
  2. ARSENIC TRIOXIDE [Concomitant]
  3. DEXAMETHASONE [Concomitant]
  4. DEPOCYT [Suspect]
     Indication: METASTASES TO MENINGES
     Dosage: 50 MG; INTH
     Route: 055

REACTIONS (6)
  - NERVOUS SYSTEM DISORDER [None]
  - HEADACHE [None]
  - MYELOPATHY [None]
  - ARACHNOIDITIS [None]
  - HALLUCINATION [None]
  - SEPSIS [None]
